FAERS Safety Report 7355886-8 (Version None)
Quarter: 2011Q1

REPORT INFORMATION
  Report Type: 
  Country: None (occurrence: None)
  Receive Date: 20110307
  Receipt Date: 20110224
  Transmission Date: 20110831
  Serious: Yes (Hospitalization)
  Sender: FDA-Public Use
  Company Number: USA/USA/11/0017596

PATIENT
  Age: 41 Year
  Sex: Male
  Weight: 141 kg

DRUGS (5)
  1. AMITRIPTYLINE HYDROCHLORIDE [Suspect]
     Indication: BIPOLAR DISORDER
     Dosage: 25 MG, 1 IN 1 D
  2. CLORAZEPATE DIPOTASSIUM [Suspect]
     Indication: BIPOLAR DISORDER
     Dosage: 15 MG, 1 IN 1 D
  3. LEVETIRACETAM [Suspect]
     Indication: COMPLEX PARTIAL SEIZURES
     Dosage: 63 GM, VITHIN 20 MINUTES,
  4. CITALOPRAM HYDROBROMIDE [Suspect]
     Indication: BIPOLAR DISORDER
     Dosage: 40 MG, 1 IN 1 D
  5. CARBAMAZEPINE [Concomitant]

REACTIONS (7)
  - INTENTIONAL OVERDOSE [None]
  - VISION BLURRED [None]
  - NEUROTOXICITY [None]
  - GAIT DISTURBANCE [None]
  - LEUKOPENIA [None]
  - THROMBOCYTOPENIA [None]
  - ATAXIA [None]
